FAERS Safety Report 9013017 (Version 3)
Quarter: 2013Q1

REPORT INFORMATION
  Report Type: Spontaneous
  Country: US (occurrence: US)
  Receive Date: 20130114
  Receipt Date: 20130206
  Transmission Date: 20140127
  Serious: Yes (Other)
  Sender: FDA-Public Use
  Company Number: US-TEVA-379943USA

PATIENT
  Sex: Female

DRUGS (1)
  1. PRAVASTATIN [Suspect]
     Dates: start: 20120703

REACTIONS (8)
  - Product contamination [Unknown]
  - Parasite stool test positive [Unknown]
  - Infection parasitic [Unknown]
  - Frequent bowel movements [Unknown]
  - Weight decreased [Unknown]
  - Asthenia [Unknown]
  - Genital infection female [Unknown]
  - Diarrhoea [Unknown]
